FAERS Safety Report 9393714 (Version 2)
Quarter: 2013Q3

REPORT INFORMATION
  Report Type: Spontaneous
  Country: JP (occurrence: JP)
  Receive Date: 20130710
  Receipt Date: 20130822
  Transmission Date: 20140515
  Serious: Yes (Hospitalization)
  Sender: FDA-Public Use
  Company Number: JP-B.I. PHARMACEUTICALS,INC./RIDGEFIELD-2013-BI-19719NB

PATIENT
  Age: 81 Year
  Sex: Female

DRUGS (5)
  1. TRAZENTA [Suspect]
     Dosage: 5 MG
     Route: 048
     Dates: start: 20130608, end: 20130703
  2. ARICEPT [Suspect]
     Dosage: 5 MG
     Route: 048
     Dates: start: 20130608, end: 20130703
  3. AMARYL [Concomitant]
     Dosage: 1 MG
     Route: 048
     Dates: end: 20130703
  4. NORVASC / AMLODIPINE BESILATE [Concomitant]
     Dosage: 5 MG
     Route: 048
     Dates: end: 20130703
  5. ACTOS / PIOGLITAZONE HYDROCHLORIDE [Concomitant]
     Dosage: 15 MG
     Route: 048
     Dates: end: 20130703

REACTIONS (1)
  - Gastric ulcer haemorrhage [Recovered/Resolved]
